FAERS Safety Report 23598068 (Version 2)
Quarter: 2024Q1

REPORT INFORMATION
  Report Type: Spontaneous
  Country: US (occurrence: US)
  Receive Date: 20240305
  Receipt Date: 20240321
  Transmission Date: 20240410
  Serious: No
  Sender: FDA-Public Use
  Company Number: US-BIOGEN-2024BI01248329

PATIENT
  Sex: Female

DRUGS (1)
  1. SKYCLARYS [Suspect]
     Active Substance: OMAVELOXOLONE
     Indication: Friedreich^s ataxia
     Route: 050
     Dates: start: 20231012

REACTIONS (9)
  - Feeling abnormal [Unknown]
  - Vomiting [Unknown]
  - Nausea [Recovered/Resolved]
  - Headache [Unknown]
  - Retching [Unknown]
  - Pyrexia [Unknown]
  - Influenza [Unknown]
  - Swelling [Unknown]
  - Product administration error [Unknown]

NARRATIVE: CASE EVENT DATE: 20230101
